FAERS Safety Report 10064526 (Version 1)
Quarter: 2014Q2

REPORT INFORMATION
  Report Type: Spontaneous
  Country: AU (occurrence: AU)
  Receive Date: 20140408
  Receipt Date: 20140408
  Transmission Date: 20141212
  Serious: Yes (Other)
  Sender: FDA-Public Use
  Company Number: AU-BRISTOL-MYERS SQUIBB COMPANY-20580734

PATIENT
  Age: 85 Year
  Sex: Female

DRUGS (1)
  1. ONGLYZA TABS [Suspect]
     Dosage: ONGOING
     Route: 048

REACTIONS (1)
  - Cardiac failure chronic [Unknown]
